FAERS Safety Report 7549165-3 (Version None)
Quarter: 2011Q2

REPORT INFORMATION
  Report Type: 
  Country: None (occurrence: None)
  Receive Date: 20110615
  Receipt Date: 20110602
  Transmission Date: 20111010
  Serious: Yes (Hospitalization)
  Sender: FDA-Public Use
  Company Number: PHHY2011CA33020

PATIENT
  Sex: Female

DRUGS (2)
  1. ZOLEDRONIC ACID [Suspect]
     Indication: OSTEOPOROSIS
     Dosage: 5 MG,
     Route: 042
     Dates: start: 20090101
  2. ZOLEDRONIC ACID [Suspect]
     Dosage: 5 MG,
     Route: 042
     Dates: start: 20100603

REACTIONS (1)
  - PANCREATOLITHIASIS [None]
